FAERS Safety Report 8840583 (Version 5)
Quarter: 2012Q4

REPORT INFORMATION
  Report Type: Report from Study
  Country: AU (occurrence: AU)
  Receive Date: 20121015
  Receipt Date: 20121214
  Transmission Date: 20130627
  Serious: Yes (Death, Other)
  Sender: FDA-Public Use
  Company Number: AU-JNJFOC-20121006346

PATIENT
  Sex: Male

DRUGS (13)
  1. STELARA [Suspect]
     Indication: PSORIASIS
     Route: 058
     Dates: start: 20091115
  2. STELARA [Suspect]
     Indication: PSORIASIS
     Route: 058
     Dates: start: 20100322
  3. STELARA [Suspect]
     Indication: PSORIASIS
     Route: 058
     Dates: start: 20120815
  4. ELOCON [Concomitant]
  5. DAIVONEX [Concomitant]
  6. ZOTON [Concomitant]
  7. AVAPRO [Concomitant]
  8. ZIMSTAT [Concomitant]
  9. MULTI B FORTE [Concomitant]
  10. GLUCOSAMINE [Concomitant]
  11. ALLOPURINOL [Concomitant]
  12. METFORMIN [Concomitant]
  13. FUROSEMIDE [Concomitant]

REACTIONS (4)
  - Hepatic failure [Fatal]
  - Metastases to liver [Fatal]
  - Anaemia [Unknown]
  - Ischaemic hepatitis [Unknown]
